FAERS Safety Report 8901452 (Version 1)
Quarter: 2012Q4

REPORT INFORMATION
  Report Type: 
  Country: US (occurrence: US)
  Receive Date: 20121108
  Receipt Date: 20121108
  Transmission Date: 20130627
  Serious: No
  Sender: FDA-Public Use
  Company Number: US-ASTRAZENECA-2012SE79339

PATIENT
  Age: 77 Year
  Sex: Female
  Weight: 56.7 kg

DRUGS (9)
  1. SYMBICORT PMDI [Suspect]
     Route: 055
  2. BROVANA [Suspect]
     Indication: CHRONIC OBSTRUCTIVE PULMONARY DISEASE
     Dosage: 15 MCG TWO TIMES A DAY
     Route: 055
     Dates: start: 201209, end: 201209
  3. BROVANA [Suspect]
     Indication: DYSPNOEA
     Dosage: 15 MCG TWO TIMES A DAY
     Route: 055
     Dates: start: 201209, end: 201209
  4. BROVANA [Suspect]
     Indication: CHRONIC OBSTRUCTIVE PULMONARY DISEASE
     Dosage: 15 MCG TWO TIMES A DAY
     Route: 055
     Dates: start: 20121001
  5. BROVANA [Suspect]
     Indication: DYSPNOEA
     Dosage: 15 MCG TWO TIMES A DAY
     Route: 055
     Dates: start: 20121001
  6. ADVAIR [Suspect]
     Indication: DYSPNOEA
     Route: 065
  7. COMBIVENT [Concomitant]
  8. ALBUTEROL [Concomitant]
  9. OXYGEN [Concomitant]
     Dosage: AT NIGHT

REACTIONS (1)
  - Dyspnoea [Recovering/Resolving]
